FAERS Safety Report 9285278 (Version 1)
Quarter: 2013Q2

REPORT INFORMATION
  Report Type: Report from Study
  Country: DK (occurrence: DK)
  Receive Date: 20130513
  Receipt Date: 20130513
  Transmission Date: 20140414
  Serious: Yes (Other)
  Sender: FDA-Public Use
  Company Number: DK-JNJFOC-20130504024

PATIENT
  Age: 28 Year
  Sex: Female

DRUGS (2)
  1. REMICADE [Suspect]
     Indication: COLITIS ULCERATIVE
     Dosage: 340 (UNITS UNSPECIFIED)
     Route: 042
     Dates: start: 20090105
  2. REMICADE [Suspect]
     Indication: COLITIS ULCERATIVE
     Dosage: 340 (UNITS UNSPECIFIED)
     Route: 042

REACTIONS (3)
  - Asthma [Unknown]
  - Infusion related reaction [Unknown]
  - Urticaria [Unknown]
